FAERS Safety Report 23089677 (Version 1)
Quarter: 2023Q4

REPORT INFORMATION
  Report Type: Spontaneous
  Country: NL (occurrence: NL)
  Receive Date: 20231020
  Receipt Date: 20231020
  Transmission Date: 20240110
  Serious: Yes (Hospitalization)
  Sender: FDA-Public Use
  Company Number: None

PATIENT
  Age: 77 Year
  Sex: Male
  Weight: 66 kg

DRUGS (5)
  1. ALBUTEROL [Suspect]
     Active Substance: ALBUTEROL
     Indication: Asthma
     Dosage: 2 DOSAGE FORMS DAILY; IF NECESSARY, 1 DOSE 2 TIMES A DAY, BRAND NAME NOT SPECIFIED
     Dates: start: 20000101
  2. BUMETANIDE [Suspect]
     Active Substance: BUMETANIDE
     Indication: Oedema
     Dosage: 2D1MG, BRAND NAME NOT SPECIFIED
     Dates: start: 20230715, end: 20230904
  3. SODIUM POLYSTYRENE SULFONATE [Suspect]
     Active Substance: SODIUM POLYSTYRENE SULFONATE
     Indication: Hyperkalaemia
     Dosage: 3XPW 3D15G, NA PDR SUSP OR/REC, RESONIUM A POWDER
     Dates: start: 20230818, end: 20230904
  4. TIOTROPIUM [Suspect]
     Active Substance: TIOTROPIUM
     Indication: Asthma
     Dosage: 2 DOSAGE FORMS DAILY; 2 INHALATIONS ONCE PER DAY, BRAND NAME NOT SPECIFIED
     Dates: start: 20000101
  5. SODIUM BICARBONATE [Concomitant]
     Active Substance: SODIUM BICARBONATE
     Indication: Product used for unknown indication
     Dosage: NATRIUMWATERSTOFCARBONAAT, BRAND NAME NOT SPECIFIED

REACTIONS (2)
  - Hypokalaemia [Recovered/Resolved]
  - Metabolic alkalosis [Recovered/Resolved]
